FAERS Safety Report 9209578 (Version 1)
Quarter: 2013Q2

REPORT INFORMATION
  Report Type: Spontaneous
  Country: US (occurrence: US)
  Receive Date: 20130404
  Receipt Date: 20130404
  Transmission Date: 20140414
  Serious: Yes (Hospitalization, Other)
  Sender: FDA-Public Use
  Company Number: US-TEVA-395586USA

PATIENT
  Sex: 0

DRUGS (1)
  1. CLOZAPINE [Suspect]
     Dates: end: 201209

REACTIONS (2)
  - Neoplasm malignant [Unknown]
  - White blood cell count decreased [Unknown]
